FAERS Safety Report 16978735 (Version 1)
Quarter: 2019Q4

REPORT INFORMATION
  Report Type: Spontaneous
  Country: DK (occurrence: DK)
  Receive Date: 20191031
  Receipt Date: 20191031
  Transmission Date: 20200122
  Serious: Yes (Other)
  Sender: FDA-Public Use
  Company Number: DK-MYLANLABS-2019M1102728

PATIENT
  Age: 69 Year
  Sex: Female

DRUGS (19)
  1. HYDROCORTISONE. [Suspect]
     Active Substance: HYDROCORTISONE
     Indication: HAEMORRHOIDS
     Dosage: UNK
     Route: 065
  2. TIXOCORTOLI-21 PIVALAS [Suspect]
     Active Substance: TIXOCORTOL PIVALATE
     Indication: SKIN TEST
     Route: 061
  3. DIBUCAINE HYDROCHLORIDE [Suspect]
     Active Substance: DIBUCAINE HYDROCHLORIDE
     Indication: SKIN TEST
     Dosage: 5 PERCENT
     Route: 061
  4. TRIAMCINOLONE [Suspect]
     Active Substance: TRIAMCINOLONE
     Indication: SKIN TEST
     Dosage: 1 PERCENT
     Route: 061
  5. BETAMETHASONE VALERATE. [Suspect]
     Active Substance: BETAMETHASONE VALERATE
     Indication: SKIN TEST
     Dosage: 1 PERCENT
     Route: 061
  6. CINCHOCAINE [Suspect]
     Active Substance: DIBUCAINE
     Indication: HAEMORRHOIDS
     Dosage: UNK
     Route: 065
  7. HYDROCORTISONE BUTEPRATE [Suspect]
     Active Substance: HYDROCORTISONE PROBUTATE
     Dosage: UNK
     Route: 061
  8. DESOXIMETASONE. [Suspect]
     Active Substance: DESOXIMETASONE
     Indication: SKIN TEST
     Dosage: 1 PERCENT
     Route: 061
  9. MOMETASONE [Suspect]
     Active Substance: MOMETASONE
     Indication: ECZEMA
     Dosage: UNK
     Route: 065
  10. BUDESONIDE. [Suspect]
     Active Substance: BUDESONIDE
     Indication: SKIN TEST
     Dosage: STRENGTH: 0.1%
     Route: 061
  11. HYDROCORTISONE BUTEPRATE [Suspect]
     Active Substance: HYDROCORTISONE PROBUTATE
     Indication: SKIN TEST
     Dosage: 1 PERCENT
     Route: 061
  12. AMCINONIDE. [Suspect]
     Active Substance: AMCINONIDE
     Indication: SKIN TEST
     Dosage: 1 PERCENT
     Route: 061
  13. TRIAMCINOLONE [Suspect]
     Active Substance: TRIAMCINOLONE
     Dosage: 0.1 PERCENT
     Route: 061
  14. BETAMETHASONE VALERATE. [Suspect]
     Active Substance: BETAMETHASONE VALERATE
     Dosage: 0.12 PERCENT
     Route: 061
  15. CLOBETASOL 17 PROP [Suspect]
     Active Substance: CLOBETASOL PROPIONATE
     Indication: SKIN TEST
     Dosage: 1 PERCENT
     Route: 061
  16. SYNALAR [Suspect]
     Active Substance: FLUOCINOLONE ACETONIDE
     Indication: HAEMORRHOIDS
     Dosage: UNK
     Route: 065
  17. DEXAMETHASONE PHOSPHATE SODIUM [Suspect]
     Active Substance: DEXAMETHASONE SODIUM PHOSPHATE
     Indication: SKIN TEST
     Dosage: 1 PERCENT
     Route: 061
  18. ALCLOMETASONE DIPROPIONATE. [Suspect]
     Active Substance: ALCLOMETASONE DIPROPIONATE
     Indication: SKIN TEST
     Dosage: 1 PERCENT
     Route: 061
  19. CLOBETASOL PROPIONATE. [Suspect]
     Active Substance: CLOBETASOL PROPIONATE
     Indication: SKIN TEST
     Dosage: 0.25 PERCENT
     Route: 061

REACTIONS (3)
  - Sensitisation [Unknown]
  - Dermatitis allergic [Unknown]
  - Dermatitis [Unknown]
